FAERS Safety Report 6621038-X (Version None)
Quarter: 2010Q1

REPORT INFORMATION
  Report Type: 
  Country: None (occurrence: None)
  Receive Date: 20100309
  Receipt Date: 20100301
  Transmission Date: 20100710
  Serious: Yes (Hospitalization)
  Sender: FDA-Public Use
  Company Number: A0717395A

PATIENT
  Age: 54 Year
  Sex: Male
  Weight: 94.5 kg

DRUGS (7)
  1. AVANDIA [Suspect]
     Dosage: 4MG TWICE PER DAY
     Route: 048
     Dates: start: 20010101, end: 20071001
  2. ASPIRIN [Concomitant]
  3. GLUCOTROL XL [Concomitant]
  4. GLUCOPHAGE [Concomitant]
  5. METOPROLOL [Concomitant]
  6. VYTORIN [Concomitant]
  7. PLAVIX [Concomitant]

REACTIONS (6)
  - ACUTE CORONARY SYNDROME [None]
  - CHEST PAIN [None]
  - CORONARY ARTERY DISEASE [None]
  - HYPOAESTHESIA [None]
  - INJURY [None]
  - LEFT VENTRICULAR DYSFUNCTION [None]
